FAERS Safety Report 20768203 (Version 1)
Quarter: 2022Q2

REPORT INFORMATION
  Report Type: Report from Study
  Country: ES (occurrence: ES)
  Receive Date: 20220429
  Receipt Date: 20220429
  Transmission Date: 20220721
  Serious: Yes (Hospitalization)
  Sender: FDA-Public Use
  Company Number: ES-ELI_LILLY_AND_COMPANY-ES202204007617

PATIENT
  Age: 10 Year
  Sex: Male
  Weight: 37.5 kg

DRUGS (15)
  1. ABEMACICLIB [Suspect]
     Active Substance: ABEMACICLIB
     Indication: Neoplasm
     Dosage: 75 MG, BID
     Route: 048
     Dates: start: 20220404, end: 20220413
  2. ABEMACICLIB [Suspect]
     Active Substance: ABEMACICLIB
     Dosage: 75 MG, BID
     Route: 048
     Dates: start: 20220404, end: 20220413
  3. TEMOZOLOMIDE [Suspect]
     Active Substance: TEMOZOLOMIDE
     Indication: Neoplasm
     Dosage: 120 MG, DAYS 1 TO 5 OF A 21 DAY CYCLE
     Route: 048
     Dates: start: 20220404, end: 20220408
  4. TEMOZOLOMIDE [Suspect]
     Active Substance: TEMOZOLOMIDE
     Dosage: 120 MG, DAYS 1 TO 5 OF A 21 DAY CYCLE
     Route: 048
     Dates: start: 20220404, end: 20220408
  5. IRINOTECAN [Suspect]
     Active Substance: IRINOTECAN
     Indication: Neoplasm
     Dosage: 60 MG, DAYS 1 TO 5 OF A 21 DAY CYCLE
     Route: 042
     Dates: start: 20220404, end: 20220405
  6. IRINOTECAN [Suspect]
     Active Substance: IRINOTECAN
     Dosage: 60 MG, DAYS 1 TO 5 OF A 21 DAY CYCLE
     Route: 042
     Dates: start: 20220406, end: 20220408
  7. CEFIXIME [Concomitant]
     Active Substance: CEFIXIME
     Indication: Prophylaxis
     Dosage: 400 MG
     Dates: start: 20220401, end: 20220411
  8. TRIMETHOPRIM [Concomitant]
     Active Substance: TRIMETHOPRIM
     Indication: Prophylaxis
     Dosage: 80 MG
     Dates: start: 20140101
  9. AZITHROMYCIN [Concomitant]
     Active Substance: AZITHROMYCIN
     Indication: Diarrhoea
     Dosage: 370 MG
     Dates: start: 20220415, end: 20220420
  10. DEXAMETHASONE [Concomitant]
     Active Substance: DEXAMETHASONE
     Indication: Prophylaxis
     Dosage: 4 MG
     Dates: start: 20220404, end: 20220408
  11. GRANISETRON [Concomitant]
     Active Substance: GRANISETRON
     Indication: Prophylaxis
     Dosage: 1.49 MG
     Dates: start: 20220404, end: 20220408
  12. ONDANSETRON [Concomitant]
     Active Substance: ONDANSETRON
     Indication: Prophylaxis
     Dosage: 4 MG
     Dates: start: 20220404, end: 20220408
  13. PEGFILGRASTIM [Concomitant]
     Active Substance: PEGFILGRASTIM
     Indication: Prophylaxis
     Dosage: UNK
     Dates: start: 20220409, end: 20220410
  14. LOPERAMIDA [LOPERAMIDE] [Concomitant]
     Indication: Diarrhoea
     Dosage: 2 MG
     Dates: start: 20220409, end: 20220414
  15. VANCOMYCIN [Concomitant]
     Active Substance: VANCOMYCIN
     Indication: Diarrhoea
     Dosage: 125 MG
     Dates: start: 20220419

REACTIONS (1)
  - Febrile neutropenia [Recovered/Resolved]

NARRATIVE: CASE EVENT DATE: 20220414
